FAERS Safety Report 16044866 (Version 1)
Quarter: 2019Q1

REPORT INFORMATION
  Report Type: Spontaneous
  Country: US (occurrence: US)
  Receive Date: 20190307
  Receipt Date: 20190307
  Transmission Date: 20190418
  Serious: No
  Sender: FDA-Public Use
  Company Number: US-TRIS PHARMA, INC.-2019TRISPO00135

PATIENT

DRUGS (1)
  1. QUILLICHEW ER [Suspect]
     Active Substance: METHYLPHENIDATE HYDROCHLORIDE
     Indication: ATTENTION DEFICIT/HYPERACTIVITY DISORDER
     Dosage: 30 MG CUTTING INTO HALF AS 15 MG, ONCE DAILY
     Route: 065
     Dates: start: 20181221

REACTIONS (4)
  - Product dose omission [Unknown]
  - Hunger [Unknown]
  - Feeling abnormal [Unknown]
  - Drug ineffective [Unknown]
